FAERS Safety Report 10924451 (Version 2)
Quarter: 2015Q2

REPORT INFORMATION
  Report Type: Spontaneous
  Country: US (occurrence: US)
  Receive Date: 20150318
  Receipt Date: 20150524
  Transmission Date: 20150821
  Serious: No
  Sender: FDA-Public Use
  Company Number: US-JNJFOC-20121108373

PATIENT
  Sex: Male

DRUGS (4)
  1. KETOCONAZOLE. [Suspect]
     Active Substance: KETOCONAZOLE
     Indication: PRODUCT USED FOR UNKNOWN INDICATION
     Dosage: 200 MG IN MORNING AND AFTERNOON AND 400 MG IN NIGHT
     Route: 065
  2. HYDROCORTISONE. [Suspect]
     Active Substance: HYDROCORTISONE
     Indication: PROSTATE CANCER METASTATIC
     Dosage: 20 MG IN MORNING AND 10 MG IN EVENING
     Route: 065
  3. DOCETAXEL. [Suspect]
     Active Substance: DOCETAXEL
     Indication: PROSTATE CANCER METASTATIC
     Route: 065
  4. DEXAMETHASONE. [Suspect]
     Active Substance: DEXAMETHASONE
     Indication: PROSTATE CANCER METASTATIC
     Dosage: AT 12 HOUR AND 1 HOUR BEFORE DOCETAXEL INFUSION AND 12 HOURS AFTER THE INFUSION
     Route: 048

REACTIONS (1)
  - Leukopenia [Unknown]
